FAERS Safety Report 24031560 (Version 1)
Quarter: 2024Q2

REPORT INFORMATION
  Report Type: Spontaneous
  Country: CN (occurrence: CN)
  Receive Date: 20240629
  Receipt Date: 20240629
  Transmission Date: 20240715
  Serious: Yes (Other)
  Sender: FDA-Public Use
  Company Number: CN-91440300279544901A-J2024HPR000368

PATIENT
  Age: 70 Year
  Sex: Male
  Weight: 59 kg

DRUGS (3)
  1. ENOXAPARIN SODIUM [Suspect]
     Active Substance: ENOXAPARIN SODIUM
     Indication: Thrombosis prophylaxis
     Dosage: 4000IU,BID
     Route: 041
     Dates: start: 20240527, end: 20240609
  2. ENOXAPARIN SODIUM [Suspect]
     Active Substance: ENOXAPARIN SODIUM
     Indication: Thrombosis prophylaxis
     Dosage: 4000IU,QD
     Route: 041
     Dates: start: 20240610, end: 20240610
  3. BATROXOBIN [Suspect]
     Active Substance: BATROXOBIN
     Indication: Peripheral arterial occlusive disease
     Dosage: 0.5ML,QD
     Route: 041
     Dates: start: 20240530

REACTIONS (2)
  - Post procedural haemorrhage [Not Recovered/Not Resolved]
  - Blood fibrinogen decreased [Not Recovered/Not Resolved]

NARRATIVE: CASE EVENT DATE: 20240606
